FAERS Safety Report 18845440 (Version 2)
Quarter: 2021Q1

REPORT INFORMATION
  Report Type: Spontaneous
  Country: US (occurrence: US)
  Receive Date: 20210204
  Receipt Date: 20210218
  Transmission Date: 20210419
  Serious: No
  Sender: FDA-Public Use
  Company Number: US-PFIZER INC-2021086145

PATIENT
  Age: 42 Year
  Sex: Male

DRUGS (3)
  1. GENOTROPIN MQ [Suspect]
     Active Substance: SOMATROPIN
     Dosage: 1 MG [1.0MG 2 DAYS]
  2. GENOTROPIN MQ [Suspect]
     Active Substance: SOMATROPIN
     Indication: MARFAN^S SYNDROME
     Dosage: 1 MG, 2X/DAY
  3. GENOTROPIN MQ [Suspect]
     Active Substance: SOMATROPIN
     Dosage: 1 MG, 2X/WEEK

REACTIONS (2)
  - Fatigue [Unknown]
  - Off label use [Unknown]

NARRATIVE: CASE EVENT DATE: 20001005
